FAERS Safety Report 4738039-9 (Version None)
Quarter: 2005Q3

REPORT INFORMATION
  Report Type: 
  Country: None (occurrence: None)
  Receive Date: 20050805
  Receipt Date: 20050805
  Transmission Date: 20060218
  Serious: Yes (Other)
  Sender: FDA-Public Use
  Company Number: None

PATIENT
  Age: 50 Year
  Sex: Male
  Weight: 81.6475 kg

DRUGS (4)
  1. MEDROL [Suspect]
     Indication: RASH
     Dosage: 6 PILLS 1ST DAY, ORAL  ; 5 PILLS NEXT DAY; 4 PILLS NEXT DAY
     Route: 048
     Dates: start: 20050430
  2. MEDROL [Suspect]
     Indication: RASH
     Dosage: 6 PILLS 1ST DAY, ORAL  ; 5 PILLS NEXT DAY; 4 PILLS NEXT DAY
     Route: 048
     Dates: start: 20050501
  3. MEDROL [Suspect]
     Indication: RASH
     Dosage: 6 PILLS 1ST DAY, ORAL  ; 5 PILLS NEXT DAY; 4 PILLS NEXT DAY
     Route: 048
     Dates: start: 20050502
  4. FLUTICASONE PRIOPONATE CREAM [Concomitant]

REACTIONS (2)
  - EJACULATION DISORDER [None]
  - ERECTILE DYSFUNCTION [None]
